FAERS Safety Report 8372505-2 (Version None)
Quarter: 2012Q2

REPORT INFORMATION
  Report Type: 
  Country: None (occurrence: None)
  Receive Date: 20120521
  Receipt Date: 20120511
  Transmission Date: 20120825
  Serious: Yes (Other)
  Sender: FDA-Public Use
  Company Number: PHHY2012ES041237

PATIENT
  Age: 74 Year
  Sex: Male

DRUGS (9)
  1. PREDNISONE [Concomitant]
  2. SIROLIMUS [Concomitant]
     Dosage: UNK UKN, UNK
  3. FUROSEMIDE [Concomitant]
     Dosage: UNK UKN, UNK
  4. CYCLOSPORINE [Suspect]
     Indication: RENAL TRANSPLANT
     Dosage: UNK UKN, UNK
  5. DOXAZOSIN MESYLATE [Concomitant]
     Dosage: UNK UKN, UNK
  6. AZATHIOPRINE [Concomitant]
  7. LOSARTAN POTASSIUM [Concomitant]
     Dosage: UNK UKN, UNK
  8. HYDROCHLOROTHIAZIDE [Concomitant]
  9. ATORVASTATIN CALCIUM [Concomitant]
     Dosage: UNK UKN, UNK

REACTIONS (15)
  - HILAR LYMPHADENOPATHY [None]
  - BACILLARY ANGIOMATOSIS [None]
  - SKIN LESION [None]
  - PLASMACYTOMA [None]
  - POST TRANSPLANT LYMPHOPROLIFERATIVE DISORDER [None]
  - SUBCUTANEOUS NODULE [None]
  - VASCULAR NEOPLASM [None]
  - SKIN ULCER [None]
  - NEOPLASM SKIN [None]
  - DYSPNOEA [None]
  - DIABETES MELLITUS [None]
  - PULMONARY MASS [None]
  - SKIN MASS [None]
  - SKIN PLAQUE [None]
  - THROMBOCYTOPENIA [None]
